FAERS Safety Report 18334727 (Version 3)
Quarter: 2020Q4

REPORT INFORMATION
  Report Type: Report from Study
  Country: IT (occurrence: IT)
  Receive Date: 20201001
  Receipt Date: 20201204
  Transmission Date: 20210113
  Serious: Yes (Other)
  Sender: FDA-Public Use
  Company Number: IT-CELGENEUS-ITA-20200701947

PATIENT
  Age: 76 Year
  Sex: Male
  Weight: 67 kg

DRUGS (13)
  1. FEDRATINIB [Suspect]
     Active Substance: FEDRATINIB
     Indication: MYELOFIBROSIS
     Dosage: 400 MG X 1 X 1 DAYS
     Route: 048
     Dates: start: 20200110, end: 20200220
  2. DANAZOLE [Concomitant]
     Indication: MYELOFIBROSIS
     Dosage: 200 MG X 2 X 1 DAYS
     Route: 048
     Dates: start: 20200714
  3. ENOXAPARINA [Concomitant]
     Active Substance: ENOXAPARIN
     Indication: ATRIAL FIBRILLATION
     Dosage: 4000 IU X 1 X 1 DAYS
     Route: 030
     Dates: start: 20200612
  4. LEVOTIROXINA [Concomitant]
     Active Substance: LEVOTHYROXINE
     Indication: HYPOTHYROIDISM
     Dosage: 50 UL/ML X 1 X 1 DAYS
     Route: 048
     Dates: start: 20190509
  5. UMECLIDINIO BROMURO [Concomitant]
     Indication: CHRONIC OBSTRUCTIVE PULMONARY DISEASE
     Dosage: 55 UG X 1 X 1 DAYS
     Route: 055
     Dates: start: 20200604
  6. BISOPROLOLE [Concomitant]
     Indication: ATRIAL FIBRILLATION
     Dosage: 2.5 MG X 2 X 1 DAYS
     Route: 048
     Dates: start: 20180503
  7. EDOXABAN [Concomitant]
     Active Substance: EDOXABAN TOSYLATE
     Indication: ATRIAL FIBRILLATION
     Dosage: 30 MG X 1 X 1 DAYS
     Route: 048
     Dates: start: 20180706, end: 20200604
  8. SPIRONOLATTONE [Concomitant]
     Active Substance: SPIRONOLACTONE
     Indication: HYPERTENSION
     Dosage: 37 MG X 1 X 1 DAYS
     Route: 048
     Dates: start: 20190509, end: 20200603
  9. ALLOPURINOLE [Concomitant]
     Indication: PROPHYLAXIS
     Dosage: 300 MG X 1 X 1 DAYS
     Route: 048
     Dates: start: 20200528
  10. VITAMIN B6 [Concomitant]
     Active Substance: PYRIDOXINE HYDROCHLORIDE
     Indication: HYPOVITAMINOSIS
     Dosage: 300 MG X 1 X 1 DAYS
     Route: 048
     Dates: start: 20190307
  11. ATORVASTATINA [Concomitant]
     Active Substance: ATORVASTATIN
     Indication: DYSLIPIDAEMIA
     Dosage: 10 MG X 1 X 1 DAYS
     Route: 048
     Dates: start: 20180503
  12. BUDENOSIDE [Concomitant]
     Active Substance: BUDESONIDE
     Indication: CHRONIC OBSTRUCTIVE PULMONARY DISEASE
     Dosage: 200 UG X 2 X 1 DAYS
     Route: 055
     Dates: start: 20160906
  13. FUROSEMIDE. [Concomitant]
     Active Substance: FUROSEMIDE
     Indication: HYPERTENSION
     Dosage: 25 MG X 1 X 1 DAYS
     Route: 048
     Dates: start: 20190509

REACTIONS (1)
  - Vitamin B1 decreased [Recovering/Resolving]

NARRATIVE: CASE EVENT DATE: 20200702
